FAERS Safety Report 25163702 (Version 1)
Quarter: 2025Q2

REPORT INFORMATION
  Report Type: Spontaneous
  Country: IT (occurrence: IT)
  Receive Date: 20250405
  Receipt Date: 20250405
  Transmission Date: 20250717
  Serious: Yes (Death, Other)
  Sender: AMGEN
  Company Number: IT-AMGEN-ITASP2025066300

PATIENT

DRUGS (3)
  1. BLINATUMOMAB [Suspect]
     Active Substance: BLINATUMOMAB
     Indication: Minimal residual disease
     Route: 065
  2. BLINATUMOMAB [Suspect]
     Active Substance: BLINATUMOMAB
     Indication: B-cell type acute leukaemia
  3. INOTUZUMAB OZOGAMICIN [Suspect]
     Active Substance: INOTUZUMAB OZOGAMICIN
     Indication: B-cell type acute leukaemia
     Route: 065

REACTIONS (24)
  - Pneumonitis [Fatal]
  - Cerebral haemorrhage [Fatal]
  - Neurotoxicity [Unknown]
  - Leukopenia [Unknown]
  - Tumour lysis syndrome [Unknown]
  - Febrile neutropenia [Unknown]
  - Neutropenia [Unknown]
  - Venoocclusive liver disease [Unknown]
  - Thrombocytopenia [Unknown]
  - Haematotoxicity [Unknown]
  - Anaemia [Unknown]
  - Hepatotoxicity [Unknown]
  - Infection [Unknown]
  - Asthenia [Unknown]
  - Bronchospasm [Unknown]
  - Constipation [Unknown]
  - Oedema [Unknown]
  - Pyrexia [Unknown]
  - Pain [Unknown]
  - Rash [Unknown]
  - Vomiting [Unknown]
  - Adverse event [Unknown]
  - Headache [Unknown]
  - Nausea [Unknown]
